FAERS Safety Report 5018150-8 (Version None)
Quarter: 2006Q2

REPORT INFORMATION
  Report Type: 
  Country: None (occurrence: None)
  Receive Date: 20060530
  Receipt Date: 20050216
  Transmission Date: 20061013
  Serious: Yes (Other)
  Sender: FDA-Public Use
  Company Number: 2005034209

PATIENT
  Age: 65 Year
  Sex: Female

DRUGS (3)
  1. LYRICA [Suspect]
     Indication: PAIN
     Dosage: 150 MG (75 MG, 2 IN 1 D), ORAL
     Route: 048
     Dates: start: 20050114
  2. DIHYDROCODEINE (DIHYDROCODEINE) [Concomitant]
  3. AMITRIPTYLINE HCL [Concomitant]

REACTIONS (8)
  - ANOREXIA [None]
  - DRY MOUTH [None]
  - FLUID RETENTION [None]
  - GRIP STRENGTH DECREASED [None]
  - HYPOAESTHESIA ORAL [None]
  - SOMNOLENCE [None]
  - SPEECH DISORDER [None]
  - WEIGHT INCREASED [None]
